FAERS Safety Report 11246225 (Version 6)
Quarter: 2015Q3

REPORT INFORMATION
  Report Type: Spontaneous
  Country: AR (occurrence: AR)
  Receive Date: 20150708
  Receipt Date: 20150907
  Transmission Date: 20151125
  Serious: Yes (Hospitalization, Other)
  Sender: FDA-Public Use
  Company Number: AR-ALEXION-A201502483

PATIENT

DRUGS (3)
  1. SOLIRIS [Suspect]
     Active Substance: ECULIZUMAB
     Indication: HAEMOLYTIC URAEMIC SYNDROME
     Dosage: 1200 MG, Q2W
     Route: 042
     Dates: start: 20141010
  2. HEPARIN [Concomitant]
     Active Substance: HEPARIN SODIUM
     Indication: ANTICOAGULANT THERAPY
     Route: 065
  3. GAMMA-GLOBULIN [Concomitant]
     Active Substance: IMMUNE GLOBULIN NOS
     Indication: IMMUNE TOLERANCE INDUCTION
     Dosage: UNK (2 GR/KG)
     Route: 042

REACTIONS (8)
  - Streptococcus test positive [Recovered/Resolved]
  - Device malfunction [Recovered/Resolved]
  - Pyrexia [Recovered/Resolved]
  - Vena cava thrombosis [Recovered/Resolved]
  - Thrombosis in device [Not Recovered/Not Resolved]
  - Staphylococcus test positive [Recovered/Resolved]
  - Device related infection [Recovered/Resolved]
  - Blood culture positive [Unknown]

NARRATIVE: CASE EVENT DATE: 20150625
